FAERS Safety Report 5741226-4 (Version None)
Quarter: 2008Q2

REPORT INFORMATION
  Report Type: 
  Country: None (occurrence: None)
  Receive Date: 20080516
  Receipt Date: 20080506
  Transmission Date: 20081010
  Serious: Yes (Other)
  Sender: FDA-Public Use
  Company Number: US-PFIZER INC-2008040872

PATIENT
  Sex: Female

DRUGS (2)
  1. CHANTIX [Suspect]
  2. ZYRTEC [Concomitant]

REACTIONS (1)
  - URTICARIA [None]
